FAERS Safety Report 8276531-3 (Version None)
Quarter: 2012Q2

REPORT INFORMATION
  Report Type: 
  Country: None (occurrence: None)
  Receive Date: 20120412
  Receipt Date: 20120227
  Transmission Date: 20120825
  Serious: No
  Sender: FDA-Public Use
  Company Number: US-GLAXOSMITHKLINE-A0967654A

PATIENT
  Age: 58 Year
  Sex: Male

DRUGS (6)
  1. MULTI-VITAMINS [Concomitant]
  2. METFORMIN HCL [Concomitant]
  3. JALYN [Suspect]
     Indication: PROSTATOMEGALY
     Dosage: 1CAP PER DAY
     Route: 048
     Dates: start: 20111101
  4. PRAVASTATIN [Concomitant]
  5. ANDROGEL [Concomitant]
     Indication: NIGHT SWEATS
  6. OMEPRAZOLE [Concomitant]

REACTIONS (2)
  - NIGHT SWEATS [None]
  - ANXIETY [None]
